FAERS Safety Report 5506260-8 (Version None)
Quarter: 2007Q4

REPORT INFORMATION
  Report Type: 
  Country: None (occurrence: None)
  Receive Date: 20071105
  Receipt Date: 20071025
  Transmission Date: 20080405
  Serious: Yes (Hospitalization, Other)
  Sender: FDA-Public Use
  Company Number: US-JNJFOC-20070702843

PATIENT
  Sex: Female
  Weight: 55.34 kg

DRUGS (5)
  1. REMICADE [Suspect]
  2. REMICADE [Suspect]
  3. REMICADE [Suspect]
  4. REMICADE [Suspect]
     Indication: CROHN'S DISEASE
  5. FLAGYL [Concomitant]
     Indication: INFECTION

REACTIONS (10)
  - CARDIAC FAILURE CONGESTIVE [None]
  - ENTEROCUTANEOUS FISTULA [None]
  - ISCHAEMIC CARDIOMYOPATHY [None]
  - MALIGNANT HYPERTENSION [None]
  - MULTI-ORGAN FAILURE [None]
  - MYOCARDIAL INFARCTION [None]
  - PULMONARY OEDEMA [None]
  - RENAL ARTERY STENOSIS [None]
  - RENAL FAILURE ACUTE [None]
  - SEPSIS [None]
